FAERS Safety Report 25583243 (Version 1)
Quarter: 2025Q3

REPORT INFORMATION
  Report Type: Report from Study
  Country: CN (occurrence: None)
  Receive Date: 20250721
  Receipt Date: 20250721
  Transmission Date: 20251020
  Serious: Yes (Hospitalization, Other)
  Sender: JIANGSU HANSOH PHARMACEUTICAL GROUP CO., LTD.
  Company Number: CN-Hansoh-C2023219018075

PATIENT
  Age: 59 Year
  Sex: Male
  Weight: 76 kg

DRUGS (2)
  1. GEMCITABINE HYDROCHLORIDE [Suspect]
     Active Substance: GEMCITABINE HYDROCHLORIDE
     Indication: Pancreatic carcinoma
     Route: 041
     Dates: start: 20231027, end: 20231027
  2. PACLITAXEL [Suspect]
     Active Substance: PACLITAXEL
     Indication: Pancreatic carcinoma
     Route: 041
     Dates: start: 20231027, end: 20231027

REACTIONS (1)
  - Prothrombin time prolonged [Not Recovered/Not Resolved]

NARRATIVE: CASE EVENT DATE: 20231103
